FAERS Safety Report 4716390-6 (Version None)
Quarter: 2005Q3

REPORT INFORMATION
  Report Type: 
  Country: None (occurrence: None)
  Receive Date: 20050713
  Receipt Date: 20050704
  Transmission Date: 20060218
  Serious: No
  Sender: FDA-Public Use
  Company Number: 11737

PATIENT
  Age: 52 Year
  Sex: Female

DRUGS (2)
  1. MORPHINE [Suspect]
     Indication: MUSCULOSKELETAL DISCOMFORT
     Dosage: 5 MG IV
     Route: 042
     Dates: start: 20050511
  2. METOCLOPRAMIDE [Concomitant]

REACTIONS (4)
  - ERYTHEMA [None]
  - MALAISE [None]
  - ORTHOSTATIC HYPOTENSION [None]
  - VOMITING [None]
